FAERS Safety Report 7510011-5 (Version None)
Quarter: 2011Q2

REPORT INFORMATION
  Report Type: 
  Country: None (occurrence: None)
  Receive Date: 20110527
  Receipt Date: 20110525
  Transmission Date: 20111010
  Serious: Yes (Death, Other)
  Sender: FDA-Public Use
  Company Number: IT-GENZYME-FLUD-1001204

PATIENT
  Age: 18 Year
  Sex: Female

DRUGS (8)
  1. FLUDARA [Suspect]
     Indication: HODGKIN'S DISEASE
  2. FLUDARA [Suspect]
     Indication: STEM CELL TRANSPLANT
     Dosage: 30 MG/M2, QDX5
     Route: 065
  3. THIOTEPA [Suspect]
     Indication: HODGKIN'S DISEASE
  4. MTX [Concomitant]
     Indication: PROPHYLAXIS AGAINST GRAFT VERSUS HOST DISEASE
  5. CYCLOSPORINE [Concomitant]
     Indication: PROPHYLAXIS AGAINST GRAFT VERSUS HOST DISEASE
  6. TREOSULFAN [Suspect]
     Indication: STEM CELL TRANSPLANT
     Dosage: 14 G/M2, QDX3
     Route: 065
  7. TREOSULFAN [Suspect]
     Indication: HODGKIN'S DISEASE
  8. THIOTEPA [Suspect]
     Indication: STEM CELL TRANSPLANT
     Dosage: 10 MG/KG, ONCE
     Route: 065

REACTIONS (2)
  - ENGRAFT FAILURE [None]
  - RESPIRATORY FAILURE [None]
